FAERS Safety Report 15698685 (Version 1)
Quarter: 2018Q4

REPORT INFORMATION
  Report Type: Spontaneous
  Country: FR (occurrence: FR)
  Receive Date: 20181207
  Receipt Date: 20181207
  Transmission Date: 20190205
  Serious: Yes (Hospitalization)
  Sender: FDA-Public Use
  Company Number: FR-ACCORD-095361

PATIENT
  Age: 82 Year
  Sex: Female

DRUGS (9)
  1. AMLODIPINE [Suspect]
     Active Substance: AMLODIPINE BESYLATE
     Indication: HYPERTENSION
     Route: 048
     Dates: start: 20180119, end: 20180122
  2. MOCLOBEMIDE [Concomitant]
     Active Substance: MOCLOBEMIDE
  3. RILMENIDINE BIOGARAN [Concomitant]
     Active Substance: RILMENIDINE
  4. GANFORT [Concomitant]
     Active Substance: BIMATOPROST\TIMOLOL
  5. CLINDAMYCIN. [Suspect]
     Active Substance: CLINDAMYCIN
     Indication: OSTEOMYELITIS
     Route: 048
     Dates: start: 20180108, end: 20180122
  6. SIMVASTATIN. [Concomitant]
     Active Substance: SIMVASTATIN
  7. LEVOFLOXACIN/LEVOFLOXACIN MESYLATE [Suspect]
     Active Substance: LEVOFLOXACIN
     Indication: OSTEOMYELITIS
     Route: 048
     Dates: start: 20180108, end: 20180122
  8. ENALAPRIL/ENALAPRIL MALEATE [Concomitant]
  9. ALPRAZOLAM. [Concomitant]
     Active Substance: ALPRAZOLAM

REACTIONS (2)
  - Toxic skin eruption [Recovering/Resolving]
  - Off label use [Unknown]

NARRATIVE: CASE EVENT DATE: 20180118
